FAERS Safety Report 19070148 (Version 1)
Quarter: 2021Q1

REPORT INFORMATION
  Report Type: Spontaneous
  Country: MX (occurrence: MX)
  Receive Date: 20210329
  Receipt Date: 20210329
  Transmission Date: 20210420
  Serious: Yes (Hospitalization)
  Sender: FDA-Public Use
  Company Number: MX-BAUSCH-BL-2021-010787

PATIENT
  Age: 21 Year
  Sex: Female

DRUGS (2)
  1. ELIDEL [Suspect]
     Active Substance: PIMECROLIMUS
     Indication: ERYTHEMA
     Dosage: ONE APPLICATION ONCE A DAY AT MORNING FOR ONE WEEK
     Route: 061
     Dates: start: 202007, end: 202008
  2. ELIDEL [Suspect]
     Active Substance: PIMECROLIMUS
     Dosage: ONE APPLICATION ONCE A DAY AT MORNING FOR ONE WEEK
     Route: 061

REACTIONS (2)
  - Product prescribing error [Unknown]
  - Eczema [Recovered/Resolved]

NARRATIVE: CASE EVENT DATE: 202007
